FAERS Safety Report 19674686 (Version 1)
Quarter: 2021Q3

REPORT INFORMATION
  Report Type: Spontaneous
  Country: CH (occurrence: CH)
  Receive Date: 20210809
  Receipt Date: 20210809
  Transmission Date: 20211014
  Serious: Yes (Other)
  Sender: FDA-Public Use
  Company Number: CH-BAYER-2021-186259

PATIENT
  Sex: Female

DRUGS (1)
  1. STIVARGA [Suspect]
     Active Substance: REGORAFENIB
     Dosage: (SINCE THE BEGINNING OF THE YEAR)
     Dates: start: 2021

REACTIONS (2)
  - Fatigue [None]
  - Intestinal obstruction [None]
